FAERS Safety Report 14919603 (Version 1)
Quarter: 2018Q2

REPORT INFORMATION
  Report Type: Spontaneous
  Country: US (occurrence: US)
  Receive Date: 20180521
  Receipt Date: 20180521
  Transmission Date: 20180711
  Serious: Yes (Hospitalization, Other)
  Sender: FDA-Public Use
  Company Number: US-ASTELLAS-2018US022870

PATIENT
  Age: 17 Year
  Sex: Female

DRUGS (3)
  1. PROGRAF [Suspect]
     Active Substance: TACROLIMUS\TACROLIMUS ANHYDROUS
     Indication: RENAL TRANSPLANT
     Dosage: UNK UNK, TWICE DAILY
     Route: 065
  2. AZATHIOPRINE. [Concomitant]
     Active Substance: AZATHIOPRINE
     Indication: RENAL TRANSPLANT
     Dosage: UNK UNK, UNKNOWN FREQ.
     Route: 065
  3. MYCOPHENOLATE MOFETIL. [Concomitant]
     Active Substance: MYCOPHENOLATE MOFETIL
     Indication: RENAL TRANSPLANT
     Dosage: UNK UNK, UNKNOWN FREQ.
     Route: 065

REACTIONS (12)
  - Immunosuppressant drug level decreased [Not Recovered/Not Resolved]
  - Delayed graft function [Unknown]
  - Ureteric stenosis [Unknown]
  - Renovascular hypertension [Unknown]
  - Complications of transplanted kidney [Recovered/Resolved]
  - Hypercreatininaemia [Unknown]
  - Ureteric obstruction [Recovered/Resolved]
  - Drug level changed [Recovering/Resolving]
  - Hydronephrosis [Recovered/Resolved]
  - Renal tubular necrosis [Unknown]
  - Treatment noncompliance [Unknown]
  - Blood creatinine increased [Not Recovered/Not Resolved]
